FAERS Safety Report 4762815-X (Version None)
Quarter: 2005Q3

REPORT INFORMATION
  Report Type: 
  Country: None (occurrence: None)
  Receive Date: 20050907
  Receipt Date: 20050823
  Transmission Date: 20060218
  Serious: Yes (Hospitalization)
  Sender: FDA-Public Use
  Company Number: IT-JNJFOC-20050900968

PATIENT
  Sex: Female

DRUGS (1)
  1. TRAMADOL HCL [Suspect]
     Indication: POST HERPETIC NEURALGIA
     Route: 048

REACTIONS (7)
  - ABDOMINAL PAIN [None]
  - ACCIDENTAL OVERDOSE [None]
  - AMNESIA [None]
  - ASTHENIA [None]
  - DIZZINESS [None]
  - SOMNOLENCE [None]
  - TORTICOLLIS [None]
